FAERS Safety Report 8965104 (Version 3)
Quarter: 2013Q1

REPORT INFORMATION
  Report Type: Spontaneous
  Country: JP (occurrence: JP)
  Receive Date: 20121213
  Receipt Date: 20130128
  Transmission Date: 20140127
  Serious: Yes (Hospitalization)
  Sender: FDA-Public Use
  Company Number: JP-ASTRAZENECA-2012SE92586

PATIENT
  Age: 80 Year
  Sex: Female

DRUGS (4)
  1. SEROQUEL [Suspect]
     Route: 048
  2. ARICEPT [Suspect]
     Indication: DEMENTIA
     Route: 048
  3. THYRADIN S [Suspect]
     Route: 048
  4. MEDICINE FOR DEMENTIA [Concomitant]

REACTIONS (3)
  - Sick sinus syndrome [Unknown]
  - Pneumonia [Recovered/Resolved]
  - Weight increased [Unknown]
